FAERS Safety Report 16770283 (Version 1)
Quarter: 2019Q3

REPORT INFORMATION
  Report Type: Spontaneous
  Country: GR (occurrence: GR)
  Receive Date: 20190904
  Receipt Date: 20190904
  Transmission Date: 20191005
  Serious: Yes (Death, Hospitalization, Other)
  Sender: FDA-Public Use
  Company Number: GR-ALKEM LABORATORIES LIMITED-GR-ALKEM-2019-07519

PATIENT
  Age: 66 Year
  Sex: Female

DRUGS (2)
  1. CAPECITABINE. [Suspect]
     Active Substance: CAPECITABINE
     Indication: ADENOCARCINOMA OF COLON
     Dosage: 1000 MILLIGRAM/SQ. METER, BID FROM D1 TO D14, 21-DAY CYCLE
     Route: 065
  2. OXALIPLATIN. [Concomitant]
     Active Substance: OXALIPLATIN
     Indication: ADENOCARCINOMA OF COLON
     Dosage: 130 MILLIGRAM/SQ. METER ON D1
     Route: 065

REACTIONS (8)
  - Diarrhoea haemorrhagic [Unknown]
  - Generalised tonic-clonic seizure [Unknown]
  - Respiratory failure [Unknown]
  - Pneumonia [Unknown]
  - Congestive cardiomyopathy [Unknown]
  - Stomatitis [Unknown]
  - Bone marrow failure [Recovered/Resolved]
  - Septic shock [Fatal]
